FAERS Safety Report 8716336 (Version 4)
Quarter: 2013Q2

REPORT INFORMATION
  Report Type: Spontaneous
  Country: IT (occurrence: IT)
  Receive Date: 20120810
  Receipt Date: 20130520
  Transmission Date: 20140414
  Serious: Yes (Hospitalization)
  Sender: FDA-Public Use
  Company Number: IT-009507513-1208ITA002941

PATIENT
  Age: 47 Year
  Sex: Male

DRUGS (11)
  1. JANUVIA [Suspect]
     Dosage: TOTAL DAILY DOSE 100 MG, DAILY
     Route: 048
     Dates: start: 20090116, end: 2012
  2. VALPROIC ACID [Concomitant]
     Dosage: TOTAL DAILY DOSE 1500MG, DAILY
     Route: 048
  3. QUETIAPINE FUMARATE [Concomitant]
     Dosage: TOTAL DAILY DOSE 400 MG, DAILY
     Route: 048
  4. FUROSEMIDE [Concomitant]
     Indication: HYPERTENSION
     Dosage: TOTAL DAILY DOSE 50 MG, DAILY
  5. BISOPROLOL FUMARATE [Concomitant]
     Indication: HYPERTENSION
     Dosage: TOTAL DAILY DOSE 2.5 MG, DAILY
  6. METFORMIN [Concomitant]
     Dosage: UNK
     Route: 048
     Dates: start: 2004
  7. HALOPERIDOL [Concomitant]
     Dosage: TOTAL DAILY DOSE 1 MG, DAILY
     Route: 048
  8. GLICLAZIDE [Concomitant]
     Dosage: 30 MG, QD
     Dates: start: 20091023, end: 20110427
  9. GLICLAZIDE [Concomitant]
     Dosage: 60 MG, QD
     Dates: start: 20110427
  10. ATORVASTATIN [Concomitant]
     Indication: HYPERLIPIDAEMIA
     Dosage: TOTAL DAILY DOSE 10 MG, DAILY
     Route: 048
  11. CANRENOATE POTASSIUM [Concomitant]
     Indication: HYPERTENSION
     Dosage: TOTAL DAILY DOSE 100MG, DAILY

REACTIONS (1)
  - Adenocarcinoma pancreas [Unknown]
